FAERS Safety Report 5673828-8 (Version None)
Quarter: 2008Q1

REPORT INFORMATION
  Report Type: 
  Country: None (occurrence: None)
  Receive Date: 20080319
  Receipt Date: 20080311
  Transmission Date: 20080703
  Serious: Yes (Hospitalization)
  Sender: FDA-Public Use
  Company Number: US-GENENTECH-257585

PATIENT
  Age: 60 Year
  Sex: Male

DRUGS (4)
  1. BEVACIZUMAB [Suspect]
     Indication: GASTROOESOPHAGEAL CANCER
  2. IRINOTECAN HCL [Concomitant]
     Indication: GASTROOESOPHAGEAL CANCER
  3. NSAID (UNK INGREDIENTS) [Concomitant]
     Indication: DRUG USE FOR UNKNOWN INDICATION
  4. CISPLATIN [Concomitant]
     Indication: GASTROOESOPHAGEAL CANCER

REACTIONS (2)
  - HYPERTENSIVE CRISIS [None]
  - RENAL FAILURE ACUTE [None]
